FAERS Safety Report 4945883-1 (Version None)
Quarter: 2006Q1

REPORT INFORMATION
  Report Type: 
  Country: None (occurrence: None)
  Receive Date: 20060117
  Receipt Date: 20041216
  Transmission Date: 20060701
  Serious: Yes (Hospitalization)
  Sender: FDA-Public Use
  Company Number: A03200404302

PATIENT
  Age: 80 Year
  Sex: Female
  Weight: 55.7924 kg

DRUGS (2)
  1. PLAVIX [Suspect]
     Indication: TRANSIENT ISCHAEMIC ATTACK
     Dosage: 75 MG QD - ORAL
     Route: 048
     Dates: start: 20040101, end: 20040101
  2. ASA - ACETYLSALICYLIC ACID - TABLET - 81 MG [Suspect]
     Indication: CORONARY ARTERY DISEASE
     Dosage: 81 MG QD - ORAL
     Route: 048

REACTIONS (2)
  - HAEMOGLOBIN DECREASED [None]
  - RECTAL HAEMORRHAGE [None]
